FAERS Safety Report 25443265 (Version 1)
Quarter: 2025Q2

REPORT INFORMATION
  Report Type: Other
  Country: AU (occurrence: AU)
  Receive Date: 20250617
  Receipt Date: 20250617
  Transmission Date: 20250717
  Serious: Yes (Hospitalization, Other)
  Sender: ESJAY PHARMA
  Company Number: AU-ESJAY PHARMA-000737

PATIENT
  Age: 21 Year
  Sex: Male

DRUGS (3)
  1. ESCITALOPRAM [Suspect]
     Active Substance: ESCITALOPRAM OXALATE
     Indication: Depressed mood
  2. ARIPIPRAZOLE [Concomitant]
     Active Substance: ARIPIPRAZOLE
     Indication: Substance-induced psychotic disorder
  3. QUETIAPINE [Concomitant]
     Active Substance: QUETIAPINE
     Indication: Substance-induced psychotic disorder

REACTIONS (2)
  - Overdose [Unknown]
  - Suicide attempt [Unknown]
